FAERS Safety Report 21060598 (Version 1)
Quarter: 2022Q3

REPORT INFORMATION
  Report Type: Spontaneous
  Country: US (occurrence: US)
  Receive Date: 20220708
  Receipt Date: 20220708
  Transmission Date: 20221027
  Serious: No
  Sender: FDA-Public Use
  Company Number: US-TEVA-2022-US-2045969

PATIENT
  Age: 71 Year
  Sex: Female
  Weight: 82.55 kg

DRUGS (1)
  1. AUSTEDO [Suspect]
     Active Substance: DEUTETRABENAZINE
     Indication: Tardive dyskinesia
     Dosage: 36 MILLIGRAM DAILY; 18 MG IN THE MORNING AND 18 MG IN THE EVENING
     Dates: start: 202112

REACTIONS (5)
  - Photophobia [Not Recovered/Not Resolved]
  - Excessive eye blinking [Not Recovered/Not Resolved]
  - Strabismus [Not Recovered/Not Resolved]
  - Eye pain [Not Recovered/Not Resolved]
  - Impaired driving ability [Not Recovered/Not Resolved]
